FAERS Safety Report 5918183-0 (Version None)
Quarter: 2008Q3

REPORT INFORMATION
  Report Type: 
  Country: None (occurrence: None)
  Receive Date: 20080909
  Receipt Date: 20080404
  Transmission Date: 20090109
  Serious: Yes (Death)
  Sender: FDA-Public Use
  Company Number: 093-20785-08040555

PATIENT
  Age: 72 Year
  Sex: Female

DRUGS (3)
  1. THALIDOMIDE [Suspect]
     Indication: MULTIPLE MYELOMA
     Dosage: 200 MG DAILY ORAL
     Route: 048
     Dates: start: 20070822
  2. ZOLEDRONIC ACID [Concomitant]
  3. DEXAMETHASONE TAB [Concomitant]

REACTIONS (1)
  - MYOCARDIAL INFARCTION [None]
